FAERS Safety Report 7599970-2 (Version None)
Quarter: 2011Q3

REPORT INFORMATION
  Report Type: 
  Country: None (occurrence: None)
  Receive Date: 20110706
  Receipt Date: 20110706
  Transmission Date: 20111222
  Serious: Yes (Hospitalization)
  Sender: FDA-Public Use
  Company Number: None

PATIENT
  Sex: Female
  Weight: 87.9 kg

DRUGS (12)
  1. AMLODIPINE [Concomitant]
  2. PIRIDOXINE [Concomitant]
  3. APREPITANT [Concomitant]
  4. CISPLATIN [Suspect]
     Dosage: 100 MG
     Dates: end: 20110202
  5. ASPIRIN [Concomitant]
  6. LORAZEPAM [Concomitant]
  7. KEPPRA [Concomitant]
  8. DEXAMETHASONE [Concomitant]
  9. PACLITAXEL [Suspect]
     Dosage: 220 MG
     Dates: end: 20110202
  10. CRESTOR (ROSUVASTIN) [Concomitant]
  11. ONDANSETRON [Concomitant]
  12. PROCHLORPERAZINE (COMPAZINE) [Concomitant]

REACTIONS (3)
  - CONFUSIONAL STATE [None]
  - BODY TEMPERATURE INCREASED [None]
  - APHASIA [None]
